FAERS Safety Report 4264530-8 (Version None)
Quarter: 2004Q1

REPORT INFORMATION
  Report Type: 
  Country: None (occurrence: None)
  Receive Date: 20040102
  Receipt Date: 20031220
  Transmission Date: 20041129
  Serious: Yes (Other)
  Sender: FDA-Public Use
  Company Number: 2003118106

PATIENT
  Age: 66 Year
  Sex: Male

DRUGS (2)
  1. LIPITOR [Suspect]
     Indication: ILL-DEFINED DISORDER
  2. PRAVASTATIN SODIUM [Concomitant]

REACTIONS (1)
  - CEREBROVASCULAR ACCIDENT [None]
